FAERS Safety Report 7766070-8 (Version None)
Quarter: 2011Q3

REPORT INFORMATION
  Report Type: 
  Country: None (occurrence: None)
  Receive Date: 20110921
  Receipt Date: 20110909
  Transmission Date: 20111222
  Serious: Yes (Hospitalization, Disabling, Other)
  Sender: FDA-Public Use
  Company Number: PHEH2010US01705

PATIENT
  Sex: Female

DRUGS (10)
  1. ZOMETA [Suspect]
  2. DECADRON [Concomitant]
  3. NORVASC [Concomitant]
  4. COLACE [Concomitant]
  5. THALIDOMIDE [Concomitant]
     Indication: MULTIPLE MYELOMA
  6. HYDROCHLOROTHIAZIDE [Concomitant]
  7. AREDIA [Suspect]
  8. ZESTRIL [Concomitant]
  9. ATENOLOL [Concomitant]
  10. COUMADIN [Concomitant]

REACTIONS (30)
  - INTERVERTEBRAL DISC COMPRESSION [None]
  - SWELLING [None]
  - PAIN [None]
  - ANXIETY [None]
  - OSTEOLYSIS [None]
  - HAEMORRHOIDS [None]
  - OSTEONECROSIS OF JAW [None]
  - TENDERNESS [None]
  - HYPERPARATHYROIDISM [None]
  - ANHEDONIA [None]
  - PNEUMONIA [None]
  - HYPERLIPIDAEMIA [None]
  - METABOLIC ACIDOSIS [None]
  - NEUROPATHY PERIPHERAL [None]
  - PROTEINURIA [None]
  - SPINAL OSTEOARTHRITIS [None]
  - OROPHARYNGEAL PAIN [None]
  - OSTEOARTHRITIS [None]
  - INTERVERTEBRAL DISC PROTRUSION [None]
  - BONE PAIN [None]
  - MUSCULAR WEAKNESS [None]
  - ANAEMIA [None]
  - PULMONARY EMBOLISM [None]
  - KYPHOSIS [None]
  - INJURY [None]
  - DISABILITY [None]
  - NECK PAIN [None]
  - FATIGUE [None]
  - RENAL FAILURE [None]
  - DIVERTICULUM [None]
